FAERS Safety Report 6784779-X (Version None)
Quarter: 2010Q2

REPORT INFORMATION
  Report Type: 
  Country: None (occurrence: None)
  Receive Date: 20100622
  Receipt Date: 20100609
  Transmission Date: 20101027
  Serious: Yes (Other)
  Sender: FDA-Public Use
  Company Number: PHHY2010FR38021

PATIENT
  Sex: Male

DRUGS (5)
  1. ZOMETA [Suspect]
     Indication: METASTASES TO BONE
     Dosage: UNK
     Route: 042
     Dates: start: 20100504
  2. DETICENE [Suspect]
     Indication: MALIGNANT MELANOMA
     Dosage: 467 MG, UNK
     Dates: start: 20100503
  3. DETICENE [Suspect]
     Dosage: 37 MG, UNK
     Dates: start: 20100504
  4. GENTAMICINE [Suspect]
     Indication: INFECTION
     Dosage: 230 MG, PER DAY
     Dates: start: 20100507, end: 20100508
  5. TAZOCILLINE [Suspect]
     Indication: INFECTION
     Dosage: 4G/500 MG TID
     Route: 042
     Dates: start: 20100507

REACTIONS (3)
  - RENAL FAILURE ACUTE [None]
  - RENAL IMPAIRMENT [None]
  - TUMOUR LYSIS SYNDROME [None]
